FAERS Safety Report 10311362 (Version 1)
Quarter: 2014Q3

REPORT INFORMATION
  Report Type: Spontaneous
  Country: SE (occurrence: SE)
  Receive Date: 20140717
  Receipt Date: 20140717
  Transmission Date: 20150326
  Serious: Yes (Hospitalization)
  Sender: FDA-Public Use
  Company Number: SE-PFIZER INC-2014196427

PATIENT
  Age: 41 Year
  Sex: Female

DRUGS (5)
  1. STREPTOZOCIN [Concomitant]
     Active Substance: STREPTOZOCIN
  2. ALVEDON [Concomitant]
     Active Substance: ACETAMINOPHEN
  3. FENTANYL. [Concomitant]
     Active Substance: FENTANYL
  4. LYRICA [Suspect]
     Active Substance: PREGABALIN
     Dosage: 1 DF, 1X/DAY
  5. FLUOROURACIL. [Concomitant]
     Active Substance: FLUOROURACIL

REACTIONS (2)
  - Myopia [Not Recovered/Not Resolved]
  - Visual impairment [Unknown]
